FAERS Safety Report 25855299 (Version 1)
Quarter: 2025Q3

REPORT INFORMATION
  Report Type: Other
  Country: US (occurrence: US)
  Receive Date: 20250927
  Receipt Date: 20250927
  Transmission Date: 20251020
  Serious: Yes (Hospitalization)
  Sender: ANI
  Company Number: US-ANIPHARMA-030727

PATIENT
  Age: 37 Year
  Sex: Male

DRUGS (8)
  1. LORAZEPAM [Suspect]
     Active Substance: LORAZEPAM
     Indication: Catatonia
  2. MEMANTINE [Suspect]
     Active Substance: MEMANTINE
     Indication: Catatonia
  3. RISPERIDONE [Concomitant]
     Active Substance: RISPERIDONE
     Indication: Catatonia
  4. DIPHENHYDRAMINE [Concomitant]
     Active Substance: DIPHENHYDRAMINE
     Indication: Catatonia
  5. DIVALPROEX SODIUM [Concomitant]
     Active Substance: DIVALPROEX SODIUM
     Indication: Catatonia
  6. LORAZEPAM [Suspect]
     Active Substance: LORAZEPAM
     Indication: Catatonia
  7. MEMANTINE [Suspect]
     Active Substance: MEMANTINE
     Indication: Catatonia
  8. MEMANTINE [Suspect]
     Active Substance: MEMANTINE
     Indication: Catatonia

REACTIONS (2)
  - Drug intolerance [Unknown]
  - Aggression [Recovering/Resolving]
